FAERS Safety Report 24632146 (Version 1)
Quarter: 2024Q4

REPORT INFORMATION
  Report Type: Spontaneous
  Country: IT (occurrence: IT)
  Receive Date: 20241118
  Receipt Date: 20241118
  Transmission Date: 20250114
  Serious: Yes (Other)
  Sender: TEVA
  Company Number: None

PATIENT
  Age: 75 Year
  Sex: Male

DRUGS (9)
  1. PANTOPRAZOLE [Suspect]
     Active Substance: PANTOPRAZOLE
     Indication: Gastrooesophageal reflux disease
     Dosage: PANTOPRAZOLE TEVA*28CPR 40MG - 1 CP/DAY IN THE MORNING (POSSIBLE INTERACTING DRUG N.2), PANTOPRAZ...
     Route: 048
  2. INDAPAMIDE DOC [Concomitant]
     Indication: Hypertensive heart disease
     Dosage: INDAPAMIDE DOC*30CPR 1.5MG RP - 1 TABLET/DAY AT LUNCH, GENERICS
     Route: 048
  3. ELIQUIS [Suspect]
     Active Substance: APIXABAN
     Indication: Atrial fibrillation
     Dosage: ELIQUIS*60CPR RIV 5MG - DOSAGE REGIMEN: 2 TABLETS/DAY (SUSPECTED DRUG)
     Route: 048
  4. OLMESARTAN MEDOXOMIL [Concomitant]
     Active Substance: OLMESARTAN MEDOXOMIL
     Indication: Hypertensive heart disease
     Dosage: PLAUNAC*28CPR RIV 40MG - 1 CP/DAY IN THE MORNING
     Route: 048
  5. ATORVASTATIN [Concomitant]
     Active Substance: ATORVASTATIN
     Indication: Hypercholesterolaemia
     Dosage: TORVAST*30CPR RIV 20MG - 1 TABLET/DAY IN THE EVENING
     Route: 048
  6. NORVASC [Suspect]
     Active Substance: AMLODIPINE BESYLATE
     Indication: Arterial stenosis
     Dosage: NORVASC*14CPR 10MG - 1 CP/DAY IN THE EVENING (POSSIBLE INTERACTING DRUG N.1)
     Route: 048
  7. CALCIFEDIOL [Concomitant]
     Active Substance: CALCIFEDIOL
     Indication: Osteoporosis
     Dosage: DIDROGYL*OS GTT 10ML1.5MG/10ML - 10 DROPS/DAY
     Route: 048
  8. ALLOPURINOL [Concomitant]
     Active Substance: ALLOPURINOL
     Indication: Hyperuricaemia
     Dosage: ALLOPURINOL TEVA*30CPR 300MG - ? CP/DAY, ITALY
     Route: 048
  9. LASIX [Concomitant]
     Active Substance: FUROSEMIDE
     Indication: Hypertensive heart disease
     Dosage: LASIX*30CPR 25MG- 1 CP/DAY
     Route: 048

REACTIONS (2)
  - Chronic kidney disease [Unknown]
  - Haematuria [Recovered/Resolved]

NARRATIVE: CASE EVENT DATE: 20231001
